FAERS Safety Report 10619236 (Version 2)
Quarter: 2014Q4

REPORT INFORMATION
  Report Type: Spontaneous
  Country: CA (occurrence: CA)
  Receive Date: 20141202
  Receipt Date: 20141202
  Transmission Date: 20150529
  Serious: Yes (Life-Threatening, Hospitalization, Other)
  Sender: FDA-Public Use
  Company Number: CA-MYLANLABS-2014SP003775

PATIENT

DRUGS (3)
  1. METHOTREXATE [Suspect]
     Active Substance: METHOTREXATE
     Indication: CENTRAL NERVOUS SYSTEM LYMPHOMA
     Dates: start: 20121203, end: 20121208
  2. FOLINIC ACID [Concomitant]
     Active Substance: LEUCOVORIN
     Dates: start: 20121205, end: 20121208
  3. CYTARABINE. [Suspect]
     Active Substance: CYTARABINE
     Indication: CENTRAL NERVOUS SYSTEM LYMPHOMA
     Dosage: 8 MG, UNK
     Dates: start: 20121205, end: 20121205

REACTIONS (14)
  - Hypoaesthesia [Unknown]
  - Pulmonary embolism [Recovered/Resolved]
  - Neurotoxicity [Unknown]
  - Presyncope [Unknown]
  - Pain [Recovering/Resolving]
  - Paraplegia [Not Recovered/Not Resolved]
  - Toxicity to various agents [Unknown]
  - Off label use [Unknown]
  - Atelectasis [Recovered/Resolved]
  - Platelet count abnormal [Recovered/Resolved]
  - Chest pain [Recovered/Resolved]
  - Drug effect incomplete [Unknown]
  - Pneumonia [Recovered/Resolved]
  - Drug resistance [Unknown]

NARRATIVE: CASE EVENT DATE: 201212
